FAERS Safety Report 20046016 (Version 1)
Quarter: 2021Q4

REPORT INFORMATION
  Report Type: Spontaneous
  Country: US (occurrence: None)
  Receive Date: 20211108
  Receipt Date: 20211108
  Transmission Date: 20220304
  Serious: Yes (Hospitalization)
  Sender: FDA-Public Use
  Company Number: None

PATIENT
  Age: 58 Year
  Sex: Male
  Weight: 131.4 kg

DRUGS (16)
  1. CAPECITABINE [Suspect]
     Active Substance: CAPECITABINE
     Indication: Pancreatic carcinoma
     Dosage: OTHER FREQUENCY : BID FOR 14/28 DAYS;?
     Route: 048
     Dates: start: 20190604
  2. TEMOZOLOMIDE [Suspect]
     Active Substance: TEMOZOLOMIDE
     Indication: Pancreatic carcinoma
     Dosage: OTHER FREQUENCY : QD ON 5/28 DAYS;?
     Route: 048
     Dates: start: 20190604
  3. Xermelo 250mg [Concomitant]
  4. NOVOLIN R [Concomitant]
     Active Substance: INSULIN HUMAN
  5. LANTUS [Concomitant]
     Active Substance: INSULIN GLARGINE
  6. Zantac 75mg [Concomitant]
  7. CARVEDILOL [Concomitant]
     Active Substance: CARVEDILOL
  8. Fentanyl 50 mcg/hr [Concomitant]
  9. PERCOCET [Concomitant]
     Active Substance: ACETAMINOPHEN\OXYCODONE HYDROCHLORIDE
  10. Lasix 20mg [Concomitant]
  11. NORTRIPTYLINE [Concomitant]
     Active Substance: NORTRIPTYLINE
  12. LYRICA [Concomitant]
     Active Substance: PREGABALIN
  13. Sandostatin 50mcg/mL [Concomitant]
  14. TEMOZOLOMIDE [Concomitant]
     Active Substance: TEMOZOLOMIDE
  15. TEMOZOLOMIDE [Concomitant]
     Active Substance: TEMOZOLOMIDE
  16. CAPECITABINE [Concomitant]
     Active Substance: CAPECITABINE

REACTIONS (1)
  - Renal failure [None]

NARRATIVE: CASE EVENT DATE: 20211107
